FAERS Safety Report 6643342-1 (Version None)
Quarter: 2010Q1

REPORT INFORMATION
  Report Type: 
  Country: None (occurrence: None)
  Receive Date: 20100303
  Receipt Date: 20090316
  Transmission Date: 20100710
  Serious: No
  Sender: FDA-Public Use
  Company Number: 285613

PATIENT
  Age: 50 Year
  Sex: Female

DRUGS (1)
  1. NOVOLIN 70/30 [Suspect]
     Dosage: 70 IU, BID, SUBCUTANEOUS
     Route: 058

REACTIONS (1)
  - SOMNOLENCE [None]
